FAERS Safety Report 19835581 (Version 1)
Quarter: 2021Q3

REPORT INFORMATION
  Report Type: Spontaneous
  Country: US (occurrence: US)
  Receive Date: 20210916
  Receipt Date: 20210916
  Transmission Date: 20211014
  Serious: No
  Sender: FDA-Public Use
  Company Number: US-KVK-TECH, INC-20210600073

PATIENT

DRUGS (7)
  1. CELEBREX [Concomitant]
     Active Substance: CELECOXIB
  2. SIROLIMUS. [Concomitant]
     Active Substance: SIROLIMUS
  3. PENICILLIN [BENZYLPENICILLIN] [Concomitant]
     Active Substance: PENICILLIN G
  4. ATOVAQUONE ORAL SUSPENSION, USP [Suspect]
     Active Substance: ATOVAQUONE
     Dosage: SHE WAS PRESCRIBED TO TAKE TWO TEASPOON (10ML) ONCE A DAY IN EVENING
     Dates: start: 2021, end: 202106
  5. ACYCLOVIR [ACICLOVIR] [Concomitant]
     Active Substance: ACYCLOVIR
  6. ELIQUIS [Concomitant]
     Active Substance: APIXABAN
  7. MULTIVITAMINS [VITAMINS NOS] [Concomitant]
     Active Substance: VITAMINS

REACTIONS (4)
  - Abdominal discomfort [Recovered/Resolved]
  - Product physical consistency issue [Unknown]
  - Lethargy [Recovered/Resolved]
  - Feeling abnormal [Recovered/Resolved]

NARRATIVE: CASE EVENT DATE: 2021
